FAERS Safety Report 17040005 (Version 1)
Quarter: 2019Q4

REPORT INFORMATION
  Report Type: Report from Study
  Country: US (occurrence: US)
  Receive Date: 20191116
  Receipt Date: 20191116
  Transmission Date: 20200122
  Serious: No
  Sender: FDA-Public Use
  Company Number: US-IPSEN BIOPHARMACEUTICALS, INC.-2019-21452

PATIENT

DRUGS (1)
  1. DYSPORT [Suspect]
     Active Substance: ABOBOTULINUMTOXINA
     Indication: MUSCLE SPASTICITY
     Dosage: 800 (FINGER FLEXORS 200, WRIST FLEXORS 200, ELBOW FLEXORS 200, SHOULDER MUSCLES 200)

REACTIONS (2)
  - Muscle spasticity [Unknown]
  - Prescribed overdose [Unknown]
